FAERS Safety Report 10805187 (Version 1)
Quarter: 2015Q1

REPORT INFORMATION
  Report Type: Report from Study
  Country: US (occurrence: US)
  Receive Date: 20150217
  Receipt Date: 20150217
  Transmission Date: 20150721
  Serious: No
  Sender: FDA-Public Use
  Company Number: US-ABBVIE-14K-163-1258167-00

PATIENT
  Age: 45 Year
  Sex: Female

DRUGS (18)
  1. DYMISTA [Concomitant]
     Active Substance: AZELASTINE HYDROCHLORIDE\FLUTICASONE PROPIONATE
     Indication: HYPERSENSITIVITY
     Dosage: ONE SPARY IN EACH NOSTRIL
  2. IRON [Concomitant]
     Active Substance: IRON
     Indication: ANAEMIA
     Route: 048
  3. VOLTAREN [Concomitant]
     Active Substance: DICLOFENAC SODIUM
     Indication: ARTHROPATHY
  4. HOMATROPINE [Concomitant]
     Active Substance: HOMATROPINE\HOMATROPINE HYDROBROMIDE
     Indication: EYE PAIN
     Dosage: IN LEFT EYE
  5. RESTASIS [Concomitant]
     Active Substance: CYCLOSPORINE
     Indication: DRY EYE
     Dosage: ONE DROP TO EACH EYE
  6. FOLIC ACID. [Concomitant]
     Active Substance: FOLIC ACID
     Indication: RHEUMATOID ARTHRITIS
     Route: 048
  7. NORCO [Concomitant]
     Active Substance: ACETAMINOPHEN\HYDROCODONE BITARTRATE
     Indication: PAIN
     Dosage: EVERY SIX HOURS
     Route: 048
  8. LUMIGAN [Concomitant]
     Active Substance: BIMATOPROST
     Indication: EYE PAIN
     Dosage: ONE DROP IN EACH EYE AT BEDTIME
  9. ENBREL [Concomitant]
     Active Substance: ETANERCEPT
     Indication: PRODUCT USED FOR UNKNOWN INDICATION
  10. KETOROLAC [Concomitant]
     Active Substance: KETOROLAC\KETOROLAC TROMETHAMINE
     Indication: PAIN
     Dosage: TWO IN AM AND TWO IN PM
     Route: 048
  11. XANAX [Concomitant]
     Active Substance: ALPRAZOLAM
     Indication: POST-TRAUMATIC STRESS DISORDER
     Route: 048
  12. HUMIRA [Suspect]
     Active Substance: ADALIMUMAB
     Indication: RHEUMATOID ARTHRITIS
     Dates: start: 20140619
  13. LEXAPRO [Concomitant]
     Active Substance: ESCITALOPRAM OXALATE
     Indication: POST-TRAUMATIC STRESS DISORDER
     Route: 048
  14. ALEVE [Concomitant]
     Active Substance: NAPROXEN SODIUM
     Indication: PAIN
     Route: 048
  15. ALPHAGAN P [Concomitant]
     Active Substance: BRIMONIDINE TARTRATE
     Indication: GLAUCOMA
     Dosage: ONE DROP IN EACH EYE
  16. TOPAMAX [Concomitant]
     Active Substance: TOPIRAMATE
     Indication: ABNORMAL DREAMS
     Dosage: AT BEDTIME
     Route: 048
  17. LIDODERM [Concomitant]
     Active Substance: LIDOCAINE
     Indication: BACK PAIN
  18. PREDNISONE. [Concomitant]
     Active Substance: PREDNISONE
     Indication: EYE PAIN

REACTIONS (4)
  - Rash vesicular [Not Recovered/Not Resolved]
  - Swelling face [Unknown]
  - Injection site haemorrhage [Not Recovered/Not Resolved]
  - Nausea [Unknown]

NARRATIVE: CASE EVENT DATE: 2014
